FAERS Safety Report 5786782-5 (Version None)
Quarter: 2008Q2

REPORT INFORMATION
  Report Type: 
  Country: None (occurrence: None)
  Receive Date: 20080618
  Receipt Date: 20080609
  Transmission Date: 20081010
  Serious: Yes (Death, Hospitalization)
  Sender: FDA-Public Use
  Company Number: ADE2008-0228

PATIENT
  Age: 63 Year
  Sex: Male

DRUGS (8)
  1. SIMVASTATIN [Suspect]
     Dosage: ORAL
     Route: 048
  2. FUSIDIC ACID [Suspect]
  3. ASPIRIN [Concomitant]
  4. BISOPROLOL FUMARATE [Concomitant]
  5. DICLOFENAC SODIUM [Concomitant]
  6. DIPYRIDAMOLE [Concomitant]
  7. ENALAPRIL MALEATE [Concomitant]
  8. RANITIDINE HCL [Concomitant]

REACTIONS (20)
  - AORTIC ANEURYSM [None]
  - ARRHYTHMIA [None]
  - CARDIAC ARREST [None]
  - COLITIS ISCHAEMIC [None]
  - CONTINUOUS HAEMODIAFILTRATION [None]
  - COUGH DECREASED [None]
  - DIAPHRAGMATIC DISORDER [None]
  - DRUG INTERACTION [None]
  - METABOLIC DISORDER [None]
  - MUSCLE NECROSIS [None]
  - MYOCARDIAL INFARCTION [None]
  - PERIPHERAL SENSORIMOTOR NEUROPATHY [None]
  - POST PROCEDURAL HAEMORRHAGE [None]
  - RENAL FAILURE ACUTE [None]
  - RHABDOMYOLYSIS [None]
  - SPLENIC INFARCTION [None]
  - SPLENIC RUPTURE [None]
  - STAPHYLOCOCCAL INFECTION [None]
  - TACHYPNOEA [None]
  - TRACHEAL HAEMORRHAGE [None]
